FAERS Safety Report 4959916-X (Version None)
Quarter: 2006Q1

REPORT INFORMATION
  Report Type: 
  Country: None (occurrence: None)
  Receive Date: 20060331
  Receipt Date: 20050902
  Transmission Date: 20060701
  Serious: Yes (Hospitalization)
  Sender: FDA-Public Use
  Company Number: FR-MERCK-0509FRA00007

PATIENT
  Age: 58 Year
  Sex: Male
  Weight: 85 kg

DRUGS (6)
  1. VIOXX [Suspect]
     Indication: OSTEOARTHRITIS
     Route: 048
     Dates: start: 20031129, end: 20040301
  2. KETOCONAZOLE [Concomitant]
     Route: 061
     Dates: start: 20031129
  3. DESONIDE [Concomitant]
     Route: 061
     Dates: start: 20031129
  4. OMEPRAZOLE SODIUM [Concomitant]
     Indication: GASTRODUODENAL ULCER
     Route: 048
  5. QUININE AND THIAMINE [Concomitant]
     Route: 048
     Dates: start: 20031129
  6. KETOPROFEN [Concomitant]
     Indication: SHOULDER PAIN
     Route: 061
     Dates: start: 20031129

REACTIONS (5)
  - CORONARY ARTERY RESTENOSIS [None]
  - CORONARY ARTERY STENOSIS [None]
  - MYOCARDIAL INFARCTION [None]
  - STENT OCCLUSION [None]
  - SUBENDOCARDIAL ISCHAEMIA [None]
